FAERS Safety Report 20216249 (Version 3)
Quarter: 2021Q4

REPORT INFORMATION
  Report Type: Spontaneous
  Country: US (occurrence: US)
  Receive Date: 20211222
  Receipt Date: 20211230
  Transmission Date: 20220303
  Serious: Yes (Other)
  Sender: FDA-Public Use
  Company Number: US-ALXN-A202113991

PATIENT
  Age: 18 Year
  Sex: Male
  Weight: 69 kg

DRUGS (8)
  1. SOLIRIS [Suspect]
     Active Substance: ECULIZUMAB
     Indication: Thrombotic microangiopathy
     Dosage: UNK
     Route: 065
     Dates: start: 20211006
  2. SOLIRIS [Suspect]
     Active Substance: ECULIZUMAB
     Indication: Off label use
  3. ABATACEPT [Concomitant]
     Active Substance: ABATACEPT
     Indication: Product used for unknown indication
     Dosage: UNK
     Route: 065
  4. IMMUNE GLOBULIN NOS [Concomitant]
     Active Substance: IMMUNE GLOBULIN NOS
     Indication: Product used for unknown indication
     Dosage: UNK
     Route: 042
  5. CIPROFLOXACIN [Concomitant]
     Active Substance: CIPROFLOXACIN
     Indication: Product used for unknown indication
     Dosage: UNK
     Route: 065
  6. PENTAMIDINE [Concomitant]
     Active Substance: PENTAMIDINE
     Indication: Product used for unknown indication
     Dosage: UNK
     Route: 065
  7. VALACYCLOVIR                       /01269701/ [Concomitant]
     Indication: Product used for unknown indication
     Dosage: UNK
     Route: 065
  8. MICAFUNGIN [Concomitant]
     Active Substance: MICAFUNGIN
     Indication: Product used for unknown indication
     Dosage: UNK
     Route: 065

REACTIONS (2)
  - Diffuse alveolar damage [Not Recovered/Not Resolved]
  - Off label use [Unknown]
